FAERS Safety Report 25670187 (Version 1)
Quarter: 2025Q3

REPORT INFORMATION
  Report Type: Spontaneous
  Country: US (occurrence: US)
  Receive Date: 20250812
  Receipt Date: 20250812
  Transmission Date: 20251020
  Serious: Yes (Hospitalization, Other)
  Sender: SANOFI AVENTIS
  Company Number: US-COSETTE-CP2025US000758

PATIENT
  Age: 44 Year
  Sex: Male
  Weight: 86.85 kg

DRUGS (2)
  1. AMBIEN [Suspect]
     Active Substance: ZOLPIDEM TARTRATE
     Indication: Anxiety
  2. KLONOPIN [Suspect]
     Active Substance: CLONAZEPAM
     Indication: Anxiety

REACTIONS (3)
  - Loss of consciousness [Unknown]
  - Nerve injury [Unknown]
  - Amnesia [Unknown]

NARRATIVE: CASE EVENT DATE: 20090325
